FAERS Safety Report 7685546-5 (Version None)
Quarter: 2011Q3

REPORT INFORMATION
  Report Type: 
  Country: None (occurrence: None)
  Receive Date: 20110812
  Receipt Date: 20110812
  Transmission Date: 20111222
  Serious: No
  Sender: FDA-Public Use
  Company Number: None

PATIENT
  Sex: Male
  Weight: 108.8633 kg

DRUGS (1)
  1. PRAVASTATIN [Suspect]
     Indication: BLOOD CHOLESTEROL
     Dosage: 80MG 1 TABLET DAILY
     Dates: start: 20100601, end: 20110703

REACTIONS (4)
  - PRODUCT TASTE ABNORMAL [None]
  - FOREIGN BODY [None]
  - THROAT IRRITATION [None]
  - PRODUCT ODOUR ABNORMAL [None]
